FAERS Safety Report 9992441 (Version 3)
Quarter: 2014Q2

REPORT INFORMATION
  Report Type: Report from Study
  Country: FR (occurrence: FR)
  Receive Date: 20140310
  Receipt Date: 20140617
  Transmission Date: 20141212
  Serious: Yes (Hospitalization)
  Sender: FDA-Public Use
  Company Number: FR-VIIV HEALTHCARE LIMITED-B0974510A

PATIENT
  Age: 43 Year
  Sex: Male
  Weight: 60 kg

DRUGS (21)
  1. DOLUTEGRAVIR [Suspect]
     Indication: HIV INFECTION
     Dosage: 50MG TWICE PER DAY
     Route: 048
     Dates: start: 20140121
  2. CELSENTRI [Suspect]
     Indication: HIV INFECTION
     Route: 048
     Dates: start: 20140121
  3. FLUCONAZOLE [Suspect]
     Indication: PRODUCT USED FOR UNKNOWN INDICATION
     Route: 048
     Dates: start: 20140116, end: 20140128
  4. BACTRIM [Suspect]
     Indication: PRODUCT USED FOR UNKNOWN INDICATION
     Dosage: 1UNIT PER DAY
     Route: 048
     Dates: end: 20140205
  5. ETOPOSIDE [Suspect]
     Indication: B-CELL LYMPHOMA
     Route: 065
     Dates: start: 20140129
  6. CYCLOPHOSPHAMIDE [Suspect]
     Indication: B-CELL LYMPHOMA
     Route: 065
     Dates: start: 20140129
  7. DOXORUBICINE [Suspect]
     Indication: B-CELL LYMPHOMA
     Route: 065
     Dates: start: 20140206
  8. VINCRISTINE [Suspect]
     Indication: B-CELL LYMPHOMA
     Route: 065
     Dates: start: 20140206
  9. PREZISTA [Concomitant]
     Indication: HIV INFECTION
     Route: 065
  10. NORVIR [Concomitant]
     Indication: HIV INFECTION
     Route: 065
  11. VIREAD [Concomitant]
     Indication: HIV INFECTION
     Route: 065
  12. FOSCAVIR [Concomitant]
     Route: 065
     Dates: start: 20140121, end: 20140128
  13. METOCLOPRAMIDE [Concomitant]
     Route: 065
     Dates: start: 20140122, end: 20140126
  14. HYDROXYZINE [Concomitant]
     Route: 065
     Dates: start: 20140116
  15. TRAMADOL [Concomitant]
     Route: 065
     Dates: start: 20140101
  16. EZETROL [Concomitant]
     Route: 065
  17. PRAVASTATIN [Concomitant]
     Route: 065
  18. ONDANSETRON [Concomitant]
     Route: 065
     Dates: start: 20140129
  19. PREDNISOLONE [Concomitant]
     Route: 065
     Dates: start: 20140130
  20. TAZOCILLINE [Concomitant]
     Route: 065
     Dates: start: 20140131, end: 20140205
  21. MACROGOL [Concomitant]
     Route: 065

REACTIONS (1)
  - Agranulocytosis [Recovered/Resolved]
